FAERS Safety Report 25285671 (Version 2)
Quarter: 2025Q2

REPORT INFORMATION
  Report Type: Report from Study
  Country: US (occurrence: US)
  Receive Date: 20250509
  Receipt Date: 20250530
  Transmission Date: 20250716
  Serious: No
  Sender: ACADIA PHARMACEUTICALS
  Company Number: US-ACADIA PHARMACEUTICALS INC.-ACA-2025-TRF-005127

PATIENT
  Sex: Female

DRUGS (2)
  1. DAYBUE [Suspect]
     Active Substance: TROFINETIDE
     Indication: Rett syndrome
     Dosage: 20 MILLILITER, BID (G-TUBE)
     Dates: end: 20250421
  2. MIRALAX [Concomitant]
     Active Substance: POLYETHYLENE GLYCOL 3350

REACTIONS (8)
  - Heavy menstrual bleeding [Not Recovered/Not Resolved]
  - Irritable bowel syndrome [Unknown]
  - Muscle spasms [Unknown]
  - Intermenstrual bleeding [Unknown]
  - Discomfort [Unknown]
  - Insomnia [Unknown]
  - Drug interaction [Unknown]
  - Underdose [Unknown]
